FAERS Safety Report 24165911 (Version 6)
Quarter: 2025Q1

REPORT INFORMATION
  Report Type: Spontaneous
  Country: US (occurrence: US)
  Receive Date: 20240802
  Receipt Date: 20250305
  Transmission Date: 20250409
  Serious: No
  Sender: ELI LILLY AND COMPANY
  Company Number: US-ELI_LILLY_AND_COMPANY-US202408000010

PATIENT
  Age: 51 Year
  Sex: Female

DRUGS (3)
  1. VERZENIO [Suspect]
     Active Substance: ABEMACICLIB
     Indication: Breast cancer female
     Dosage: 100 MG, BID
     Route: 048
     Dates: start: 20240709
  2. VERZENIO [Suspect]
     Active Substance: ABEMACICLIB
     Dosage: 100 MG, DAILY
     Route: 048
  3. VERZENIO [Suspect]
     Active Substance: ABEMACICLIB
     Dosage: 100 MG, BID
     Route: 048
     Dates: end: 202502

REACTIONS (22)
  - Joint stiffness [Not Recovered/Not Resolved]
  - Nasal congestion [Recovered/Resolved]
  - Product dose omission issue [Unknown]
  - Hot flush [Not Recovered/Not Resolved]
  - Dyspepsia [Not Recovered/Not Resolved]
  - Heart rate increased [Recovered/Resolved]
  - Chills [Recovered/Resolved]
  - Ear pain [Recovered/Resolved]
  - Abdominal pain upper [Recovered/Resolved]
  - Thirst [Recovered/Resolved]
  - Myalgia [Recovered/Resolved]
  - Palpitations [Unknown]
  - Chest pain [Unknown]
  - Dizziness [Recovered/Resolved]
  - Abdominal pain [Unknown]
  - Cough [Recovered/Resolved]
  - Red blood cell count decreased [Recovered/Resolved]
  - Nausea [Recovered/Resolved]
  - Fatigue [Not Recovered/Not Resolved]
  - White blood cell count decreased [Recovered/Resolved]
  - Diarrhoea [Unknown]
  - Stomatitis [Unknown]
